FAERS Safety Report 5054840-9 (Version None)
Quarter: 2006Q3

REPORT INFORMATION
  Report Type: 
  Country: None (occurrence: None)
  Receive Date: 20060717
  Receipt Date: 20060608
  Transmission Date: 20061208
  Serious: Yes (Disabling, Other)
  Sender: FDA-Public Use
  Company Number: 2006083501

PATIENT
  Sex: Female
  Weight: 64.4108 kg

DRUGS (5)
  1. LIPITOR [Suspect]
     Indication: BLOOD CHOLESTEROL INCREASED
     Dosage: 20 MG (20 MG, 1 IN 1 D), ORAL
     Route: 048
     Dates: start: 20060101
  2. ZOLOFT [Suspect]
     Indication: ANXIETY
     Dosage: 200 MG (100 MG, 2 IN 1 D)
     Dates: start: 19860101
  3. NEURONTIN [Suspect]
     Indication: NERVE INJURY
     Dosage: 300 MG (100 MG, 3 IN 1 D)
     Dates: start: 20050101
  4. DESYREL [Concomitant]
  5. QUINIDINE HCL [Concomitant]

REACTIONS (10)
  - ALOPECIA [None]
  - BLEPHAROSPASM [None]
  - EAR PAIN [None]
  - EYE DISORDER [None]
  - FACIAL PALSY [None]
  - HEADACHE [None]
  - MUSCULOSKELETAL PAIN [None]
  - NECK PAIN [None]
  - NEURALGIA [None]
  - PAIN IN EXTREMITY [None]
